FAERS Safety Report 7046735-6 (Version None)
Quarter: 2010Q4

REPORT INFORMATION
  Report Type: 
  Country: None (occurrence: None)
  Receive Date: 20101015
  Receipt Date: 20101006
  Transmission Date: 20110411
  Serious: Yes (Other)
  Sender: FDA-Public Use
  Company Number: GB-JNJFOC-20101002113

PATIENT
  Age: 43 Year
  Sex: Male
  Weight: 55 kg

DRUGS (5)
  1. TOPIRAMATE [Suspect]
     Indication: MIGRAINE PROPHYLAXIS
     Route: 048
  2. AMITRIPTYLINE [Concomitant]
     Indication: DEPRESSION
     Route: 048
  3. ACETAMINOPHEN AND CODEINE PHOSPHATE [Concomitant]
     Indication: HEADACHE
     Route: 048
  4. NEURONTIN [Concomitant]
     Indication: MIGRAINE
     Route: 048
  5. ZOLMITRIPTAN [Concomitant]
     Indication: MIGRAINE
     Route: 048

REACTIONS (2)
  - NEUTROPENIA [None]
  - RASH [None]
